FAERS Safety Report 8197820-7 (Version None)
Quarter: 2012Q1

REPORT INFORMATION
  Report Type: 
  Country: None (occurrence: None)
  Receive Date: 20120309
  Receipt Date: 20120228
  Transmission Date: 20120608
  Serious: Yes (Other)
  Sender: FDA-Public Use
  Company Number: US-SANOFI-AVENTIS-2012SA013522

PATIENT
  Sex: Male

DRUGS (1)
  1. LANTUS [Suspect]
     Dosage: 75-150 UNITS DAILY DEPENDIN ON RESULTS
     Route: 058
     Dates: start: 20110101

REACTIONS (2)
  - KIDNEY INFECTION [None]
  - PNEUMONIA [None]
